FAERS Safety Report 15136611 (Version 4)
Quarter: 2018Q3

REPORT INFORMATION
  Report Type: Report from Study
  Country: US (occurrence: US)
  Receive Date: 20180712
  Receipt Date: 20180816
  Transmission Date: 20181010
  Serious: Yes (Death, Hospitalization)
  Sender: FDA-Public Use
  Company Number: US-ACTELION-A-US2018-167032

PATIENT
  Age: 68 Year
  Sex: Female
  Weight: 93.88 kg

DRUGS (5)
  1. ADEMPAS [Concomitant]
     Active Substance: RIOCIGUAT
  2. ELIQUIS [Concomitant]
     Active Substance: APIXABAN
  3. VELETRI [Suspect]
     Active Substance: EPOPROSTENOL
     Indication: PULMONARY ARTERIAL HYPERTENSION
     Dosage: 14 NG/KG, PER MIN
     Route: 042
  4. OPSUMIT [Suspect]
     Active Substance: MACITENTAN
     Indication: PULMONARY ARTERIAL HYPERTENSION
     Dosage: 10 MG, QD
     Route: 048
  5. AMLODIPINE [Concomitant]
     Active Substance: AMLODIPINE BESYLATE

REACTIONS (13)
  - Acute myocardial infarction [Unknown]
  - Death [Fatal]
  - Renal failure [Unknown]
  - Cardiac disorder [Unknown]
  - Dyspnoea [Unknown]
  - Gastric disorder [Unknown]
  - Hypotension [Unknown]
  - Dialysis [Unknown]
  - Memory impairment [Unknown]
  - Lung disorder [Unknown]
  - Oedema peripheral [Unknown]
  - Dyspnoea exertional [Unknown]
  - Renal cyst [Unknown]
